FAERS Safety Report 23839989 (Version 3)
Quarter: 2024Q4

REPORT INFORMATION
  Report Type: Spontaneous
  Country: JP (occurrence: JP)
  Receive Date: 20240510
  Receipt Date: 20241028
  Transmission Date: 20250115
  Serious: Yes (Hospitalization, Other)
  Sender: MERCK
  Company Number: JP-MSD-2405JPN000418JAA

PATIENT
  Age: 65 Year
  Sex: Male

DRUGS (2)
  1. KEYTRUDA [Suspect]
     Active Substance: PEMBROLIZUMAB
     Indication: Product used for unknown indication
     Dosage: 200 MILLIGRAM, Q3W
     Route: 041
  2. KEYTRUDA [Suspect]
     Active Substance: PEMBROLIZUMAB
     Indication: Neoplasm malignant

REACTIONS (10)
  - Malignant neoplasm progression [Unknown]
  - Pericardial effusion [Unknown]
  - Pulmonary congestion [Unknown]
  - Febrile neutropenia [Unknown]
  - Immune-mediated dermatitis [Unknown]
  - Stomatitis [Unknown]
  - Pruritus [Unknown]
  - Hypophysitis [Unknown]
  - Renal disorder [Recovering/Resolving]
  - Pleural effusion [Unknown]
